FAERS Safety Report 14548204 (Version 1)
Quarter: 2018Q1

REPORT INFORMATION
  Report Type: Spontaneous
  Country: US (occurrence: US)
  Receive Date: 20180219
  Receipt Date: 20180219
  Transmission Date: 20180509
  Serious: No
  Sender: FDA-Public Use
  Company Number: US-ROCHE-1737602

PATIENT
  Age: 20 Year
  Sex: Male

DRUGS (1)
  1. NUTROPIN [Suspect]
     Active Substance: SOMATROPIN
     Indication: BODY HEIGHT BELOW NORMAL
     Dosage: DOSE:3.2MG ALT W 3.4MG, 6 DAYS A WEEK?NUSPIN 20 PEN, STRENGTH:20MG/2ML
     Route: 058
     Dates: start: 20150217, end: 20160329

REACTIONS (1)
  - Depression [Unknown]

NARRATIVE: CASE EVENT DATE: 20160310
